FAERS Safety Report 25589359 (Version 1)
Quarter: 2025Q3

REPORT INFORMATION
  Report Type: Spontaneous
  Country: GB (occurrence: GB)
  Receive Date: 20250722
  Receipt Date: 20250722
  Transmission Date: 20251021
  Serious: Yes (Other)
  Sender: BAXTER
  Company Number: GB-BAXTER-2025BAX018519

PATIENT
  Sex: Male

DRUGS (3)
  1. SODIUM CHLORIDE [Suspect]
     Active Substance: SODIUM CHLORIDE
     Dosage: UNK UNK, EVERY 6 WK
     Route: 042
  2. WATER FOR INJECTION [Suspect]
     Active Substance: WATER
     Dosage: UNK UNK, EVERY 6 WK
     Route: 042
  3. INFLIXIMAB [Suspect]
     Active Substance: INFLIXIMAB
     Indication: Crohn^s disease
     Dosage: 680 MG, EVERY 6 WK
     Route: 042

REACTIONS (5)
  - Rectal haemorrhage [Unknown]
  - Haemorrhoids [Unknown]
  - Anal erythema [Unknown]
  - Anal inflammation [Unknown]
  - Weight decreased [Unknown]
